FAERS Safety Report 20604142 (Version 1)
Quarter: 2022Q1

REPORT INFORMATION
  Report Type: Spontaneous
  Country: US (occurrence: None)
  Receive Date: 20220316
  Receipt Date: 20220316
  Transmission Date: 20220423
  Serious: Yes (Hospitalization, Other)
  Sender: FDA-Public Use
  Company Number: None

PATIENT
  Sex: Female

DRUGS (2)
  1. CAPECITABINE [Suspect]
     Active Substance: CAPECITABINE
     Indication: Breast cancer
     Dosage: 2650 MG TWICE DAILY ORAL?
     Route: 048
     Dates: start: 202201
  2. CAPECITABINE [Suspect]
     Active Substance: CAPECITABINE
     Indication: Breast cancer
     Dosage: 2650 MG TWICE DAILY ORAL?
     Route: 048
     Dates: start: 202201

REACTIONS (2)
  - Dehydration [None]
  - Pneumonia [None]
